FAERS Safety Report 10605725 (Version 1)
Quarter: 2014Q4

REPORT INFORMATION
  Report Type: Report from Study
  Country: CA (occurrence: CA)
  Receive Date: 20141125
  Receipt Date: 20141125
  Transmission Date: 20150529
  Serious: Yes (Hospitalization)
  Sender: FDA-Public Use
  Company Number: CA-AMGEN-CANSL2014090514

PATIENT
  Age: 78 Year
  Sex: Female

DRUGS (6)
  1. VITAMINS                           /00067501/ [Concomitant]
     Dosage: UNK
  2. PROLIA [Suspect]
     Active Substance: DENOSUMAB
     Indication: OSTEOPOROSIS POSTMENOPAUSAL
     Dosage: 60 MG, Q6MO
     Route: 058
     Dates: start: 20140905
  3. ROSUVASTATIN [Concomitant]
     Active Substance: ROSUVASTATIN
     Dosage: UNK
  4. DILANTIN [Concomitant]
     Active Substance: PHENYTOIN
     Dosage: UNK
  5. KEPPRA [Concomitant]
     Active Substance: LEVETIRACETAM
     Dosage: UNK
  6. SERAX                              /00040901/ [Concomitant]
     Indication: SLEEP DISORDER

REACTIONS (8)
  - Epilepsy [Unknown]
  - Stress [Unknown]
  - Vomiting [Unknown]
  - Breast pain [Unknown]
  - Fatigue [Unknown]
  - Back pain [Unknown]
  - Dizziness [Unknown]
  - Pain in extremity [Unknown]
